FAERS Safety Report 19900864 (Version 1)
Quarter: 2021Q3

REPORT INFORMATION
  Report Type: Spontaneous
  Country: US (occurrence: US)
  Receive Date: 20210930
  Receipt Date: 20210930
  Transmission Date: 20211014
  Serious: Yes (Other)
  Sender: FDA-Public Use
  Company Number: None

PATIENT
  Age: 50 Year
  Sex: Male
  Weight: 90.45 kg

DRUGS (2)
  1. REGEN?COV [Suspect]
     Active Substance: CASIRIVIMAB\IMDEVIMAB
     Indication: COVID-19
     Dosage: ?          OTHER FREQUENCY:ONCE;?
     Route: 042
     Dates: start: 20210922, end: 20210922
  2. SODIUM CHLORIDE 09% 1 LITER [Concomitant]
     Dates: end: 20210922

REACTIONS (2)
  - Migraine [None]
  - Transient aphasia [None]

NARRATIVE: CASE EVENT DATE: 20210922
